FAERS Safety Report 20160000 (Version 1)
Quarter: 2021Q4

REPORT INFORMATION
  Report Type: Spontaneous
  Country: CA (occurrence: CA)
  Receive Date: 20211208
  Receipt Date: 20211208
  Transmission Date: 20220303
  Serious: Yes (Life-Threatening, Disabling, Other)
  Sender: FDA-Public Use
  Company Number: CA-TEVA-2021-CA-1984204

PATIENT
  Age: 62 Year
  Sex: Female
  Weight: 91 kg

DRUGS (12)
  1. MORPHINE [Suspect]
     Active Substance: MORPHINE
     Indication: Road traffic accident
     Route: 048
  2. MORPHINE [Suspect]
     Active Substance: MORPHINE
     Indication: Pain
  3. BETADERM [Concomitant]
     Active Substance: BETAMETHASONE VALERATE
  4. NEURONTIN [Concomitant]
     Active Substance: GABAPENTIN
  5. NEXIUM [Concomitant]
     Active Substance: ESOMEPRAZOLE MAGNESIUM
  6. PANTOPRAZOLE SODIUM [Concomitant]
     Active Substance: PANTOPRAZOLE SODIUM
  7. AZITHROMYCIN [Concomitant]
     Active Substance: AZITHROMYCIN
  8. CLOBETASOL [Concomitant]
     Active Substance: CLOBETASOL
  9. TORADOL [Concomitant]
     Active Substance: KETOROLAC TROMETHAMINE
  10. XYLOCAINE [Concomitant]
     Active Substance: LIDOCAINE HYDROCHLORIDE
     Indication: Road traffic accident
     Route: 051
  11. XYLOCAINE [Concomitant]
     Active Substance: LIDOCAINE HYDROCHLORIDE
     Indication: Pain
  12. ZOLOFT [Concomitant]
     Active Substance: SERTRALINE HYDROCHLORIDE

REACTIONS (1)
  - Drug hypersensitivity [Not Recovered/Not Resolved]
